FAERS Safety Report 7511346-2 (Version None)
Quarter: 2011Q2

REPORT INFORMATION
  Report Type: 
  Country: None (occurrence: None)
  Receive Date: 20110531
  Receipt Date: 20110523
  Transmission Date: 20111010
  Serious: Yes (Other)
  Sender: FDA-Public Use
  Company Number: US-JNJFOC-20110510741

PATIENT
  Age: 32 Year
  Sex: Female

DRUGS (1)
  1. NUCYNTA [Suspect]
     Indication: CHOLECYSTECTOMY
     Dosage: 3 DOSES
     Route: 048
     Dates: start: 20110501, end: 20110501

REACTIONS (2)
  - JAUNDICE [None]
  - HEPATIC ENZYME INCREASED [None]
